FAERS Safety Report 15499275 (Version 8)
Quarter: 2021Q2

REPORT INFORMATION
  Report Type: Spontaneous
  Country: US (occurrence: US)
  Receive Date: 20181015
  Receipt Date: 20210610
  Transmission Date: 20210716
  Serious: Yes (Hospitalization, Other)
  Sender: FDA-Public Use
  Company Number: US-ELI_LILLY_AND_COMPANY-US201810003082

PATIENT
  Age: 73 Year
  Sex: Female

DRUGS (9)
  1. INSULIN GLARGINE [Suspect]
     Active Substance: INSULIN GLARGINE
     Dosage: 26 U, DAILY
     Route: 058
  2. INSULIN GLARGINE [Suspect]
     Active Substance: INSULIN GLARGINE
     Dosage: 5 IU, TID
     Route: 058
  3. HUMALOG [Suspect]
     Active Substance: INSULIN LISPRO
     Dosage: 5 IU, TID
  4. HUMALOG MIX75/25 [Suspect]
     Active Substance: INSULIN LISPRO
     Indication: TYPE 2 DIABETES MELLITUS
     Dosage: 5 U, UNKNOWN WITH MEALS
     Route: 058
  5. LANTUS [Concomitant]
     Active Substance: INSULIN GLARGINE
     Indication: PRODUCT USED FOR UNKNOWN INDICATION
  6. HUMALOG [Suspect]
     Active Substance: INSULIN LISPRO
     Indication: PRODUCT USED FOR UNKNOWN INDICATION
     Dosage: UNK UNK, UNKNOWN
     Route: 058
     Dates: start: 2017
  7. INSULIN GLARGINE [Suspect]
     Active Substance: INSULIN GLARGINE
     Indication: TYPE 2 DIABETES MELLITUS
     Dosage: 25 IU, DAILY (AT NIGHT)
     Route: 065
     Dates: start: 2018
  8. HUMALOG [Suspect]
     Active Substance: INSULIN LISPRO
     Indication: TYPE 2 DIABETES MELLITUS
     Dosage: UNK UNK, UNKNOWN
     Route: 065
     Dates: start: 2018
  9. HUMALOG [Suspect]
     Active Substance: INSULIN LISPRO
     Dosage: 3 IU, TID

REACTIONS (25)
  - Blood glucose increased [Not Recovered/Not Resolved]
  - Sepsis [Recovered/Resolved]
  - Eye pain [Unknown]
  - Glycosylated haemoglobin increased [Unknown]
  - Blood glucose increased [Not Recovered/Not Resolved]
  - Wrong product administered [Unknown]
  - Retinal detachment [Unknown]
  - Blood glucose increased [Not Recovered/Not Resolved]
  - Blood glucose decreased [Not Recovered/Not Resolved]
  - Blood pressure increased [Unknown]
  - Hypoacusis [Unknown]
  - Impaired healing [Not Recovered/Not Resolved]
  - Visual impairment [Unknown]
  - Pneumonia [Recovering/Resolving]
  - Diplopia [Recovered/Resolved]
  - Eye haemorrhage [Unknown]
  - Pain in extremity [Unknown]
  - Blindness [Not Recovered/Not Resolved]
  - Hyperhidrosis [Unknown]
  - Thinking abnormal [Unknown]
  - Blood glucose decreased [Recovered/Resolved]
  - COVID-19 [Recovering/Resolving]
  - Tremor [Unknown]
  - Muscular weakness [Unknown]
  - Wrong patient received product [Unknown]

NARRATIVE: CASE EVENT DATE: 201809
